FAERS Safety Report 7906951-5 (Version None)
Quarter: 2011Q4

REPORT INFORMATION
  Report Type: 
  Country: None (occurrence: None)
  Receive Date: 20111110
  Receipt Date: 20111012
  Transmission Date: 20120403
  Serious: No
  Sender: FDA-Public Use
  Company Number: US-COVIDIEN/TYCO HEALTHCARE/MALLINCKRODT-T201102388

PATIENT
  Age: 47 Year
  Sex: Male

DRUGS (7)
  1. ASPIRIN [Concomitant]
     Dosage: UNK
  2. FISH OIL [Concomitant]
     Dosage: UNK
  3. RAMIPRIL [Concomitant]
     Dosage: UNK
  4. SIMVASTATIN [Concomitant]
     Dosage: UNK
  5. COQ10 [Concomitant]
     Dosage: UNK
  6. PENNSAID [Suspect]
     Indication: PAIN IN EXTREMITY
     Dosage: 20 GTT, UNK
  7. PLAVIX [Concomitant]
     Dosage: UNK

REACTIONS (1)
  - PAIN [None]
